FAERS Safety Report 4962844-7 (Version None)
Quarter: 2006Q1

REPORT INFORMATION
  Report Type: 
  Country: None (occurrence: None)
  Receive Date: 20060331
  Receipt Date: 20060321
  Transmission Date: 20060701
  Serious: Yes (Hospitalization, Other)
  Sender: FDA-Public Use
  Company Number: HQ2316114MAY2002

PATIENT
  Age: 47 Year
  Sex: Female

DRUGS (15)
  1. SIROLIMUS                  (SIROLIMUS) [Suspect]
     Indication: PROPHYLAXIS AGAINST TRANSPLANT REJECTION
     Dosage: 6+ 3 + 2 MG ORAL SEE IMAGE
     Route: 048
     Dates: start: 20020107, end: 20020107
  2. SIROLIMUS                  (SIROLIMUS) [Suspect]
     Indication: PROPHYLAXIS AGAINST TRANSPLANT REJECTION
     Dosage: 6+ 3 + 2 MG ORAL SEE IMAGE
     Route: 048
     Dates: start: 20020129, end: 20020515
  3. SIROLIMUS                  (SIROLIMUS) [Suspect]
     Indication: PROPHYLAXIS AGAINST TRANSPLANT REJECTION
     Dosage: 6+ 3 + 2 MG ORAL SEE IMAGE
     Route: 048
     Dates: start: 20020108, end: 20020615
  4. SIROLIMUS                  (SIROLIMUS) [Suspect]
     Indication: PROPHYLAXIS AGAINST TRANSPLANT REJECTION
     Dosage: 6+ 3 + 2 MG ORAL SEE IMAGE
     Route: 048
     Dates: start: 20020516
  5. CELLCEPT [Concomitant]
  6. BISOPROLOL FUMARATE [Concomitant]
  7. MODIP             (FELODIPINE) [Concomitant]
  8. RAMIPRIL [Concomitant]
  9. ACTRAPHANE HM             (INSULIN HUMAN INJECTION, ISOPHANE) [Concomitant]
  10. LASIX [Concomitant]
  11. PRAVASTATIN SODIUM [Concomitant]
  12. AMITRIPTYLINE HCL [Concomitant]
  13. OMEPRAZOLE [Concomitant]
  14. ERYTHROPOIETIN (ERYTTHROPOIETIN) [Concomitant]
  15. TACROLIMUS (TACROLIMUS) [Concomitant]

REACTIONS (2)
  - BLOOD CREATININE INCREASED [None]
  - SIALOADENITIS [None]
